FAERS Safety Report 10671000 (Version 8)
Quarter: 2015Q3

REPORT INFORMATION
  Report Type: Spontaneous
  Country: US (occurrence: US)
  Receive Date: 20141223
  Receipt Date: 20150917
  Transmission Date: 20151125
  Serious: Yes (Death, Hospitalization, Other)
  Sender: FDA-Public Use
  Company Number: US-009507513-1412USA010299

PATIENT
  Sex: Female
  Weight: 174.15 kg

DRUGS (4)
  1. JANUMET [Suspect]
     Active Substance: METFORMIN HYDROCHLORIDE\SITAGLIPTIN PHOSPHATE
     Dosage: 50-1000 MG BID
     Route: 048
     Dates: start: 20130606, end: 20131008
  2. JANUMET [Suspect]
     Active Substance: METFORMIN HYDROCHLORIDE\SITAGLIPTIN PHOSPHATE
     Indication: TYPE 2 DIABETES MELLITUS
     Dosage: 50-1000 MG QD
     Route: 048
     Dates: start: 20130215
  3. BYETTA [Suspect]
     Active Substance: EXENATIDE
     Indication: TYPE 2 DIABETES MELLITUS
     Dosage: .005 MG, QD
     Route: 058
     Dates: start: 20080702, end: 20080807
  4. BYETTA [Suspect]
     Active Substance: EXENATIDE
     Dosage: 0.01 MG, BID
     Route: 058
     Dates: start: 20080827, end: 20111013

REACTIONS (32)
  - Constipation [Unknown]
  - Oedema [Unknown]
  - Renal cyst [Unknown]
  - Abdominal pain [Recovered/Resolved]
  - Pancreatic carcinoma metastatic [Fatal]
  - Metastases to peritoneum [Unknown]
  - Febrile neutropenia [Unknown]
  - Pyelonephritis [Unknown]
  - Fluid overload [Unknown]
  - Umbilical hernia [Unknown]
  - Osteoarthritis [Unknown]
  - Generalised oedema [Unknown]
  - Hyperbilirubinaemia [Unknown]
  - Hypothyroidism [Unknown]
  - Gastrooesophageal reflux disease [Not Recovered/Not Resolved]
  - Drug intolerance [Unknown]
  - Arthritis [Unknown]
  - Coronary arterial stent insertion [Unknown]
  - Bile duct stent insertion [Unknown]
  - Asthma [Unknown]
  - Diverticulum [Unknown]
  - Anaemia [Recovering/Resolving]
  - Inappropriate schedule of drug administration [Unknown]
  - Metastases to liver [Unknown]
  - Insulin-requiring type 2 diabetes mellitus [Unknown]
  - Muscular weakness [Unknown]
  - Anaemia [Recovering/Resolving]
  - Intervertebral disc degeneration [Unknown]
  - Depression [Unknown]
  - Atrial fibrillation [Not Recovered/Not Resolved]
  - Urinary tract infection [Unknown]
  - Paraesthesia [Unknown]

NARRATIVE: CASE EVENT DATE: 20130215
